FAERS Safety Report 8137932-7 (Version None)
Quarter: 2012Q1

REPORT INFORMATION
  Report Type: 
  Country: None (occurrence: None)
  Receive Date: 20120215
  Receipt Date: 20120203
  Transmission Date: 20120608
  Serious: No
  Sender: FDA-Public Use
  Company Number: US-B.I. PHARMACEUTICALS,INC./RIDGEFIELD-2012-BP-02214BP

PATIENT
  Age: 73 Year
  Sex: Female

DRUGS (14)
  1. SYNTHROID [Concomitant]
     Indication: HYPOTHYROIDISM
     Route: 048
     Dates: start: 20090101
  2. LEXAPRO [Concomitant]
     Indication: DEPRESSION
     Route: 048
     Dates: start: 20080101
  3. OSTEOMATRIX [Concomitant]
     Indication: PROPHYLAXIS
     Route: 048
     Dates: start: 19830101
  4. COQ10 [Concomitant]
     Indication: PROPHYLAXIS
     Route: 048
     Dates: start: 19830101
  5. OXYGEN [Concomitant]
     Indication: ASTHMA
     Route: 055
     Dates: start: 20110301
  6. ASCORBIC ACID [Concomitant]
     Indication: PROPHYLAXIS
     Route: 048
     Dates: start: 19830101
  7. CRANBERRY EXTRACT [Concomitant]
     Indication: PROPHYLAXIS
     Route: 048
     Dates: start: 19830101
  8. DULERA ORAL INHALATION [Concomitant]
     Indication: ASTHMA
     Dosage: 400 MG
     Route: 055
     Dates: start: 20110301
  9. MULTI-VITAMINS [Concomitant]
     Indication: PROPHYLAXIS
     Route: 048
     Dates: start: 19830101
  10. SPIRIVA [Suspect]
     Indication: CHRONIC OBSTRUCTIVE PULMONARY DISEASE
     Dosage: 18 MCG
     Route: 055
     Dates: start: 20111101
  11. VENTOLIN [Concomitant]
     Indication: ASTHMA
     Route: 055
     Dates: start: 20110301
  12. VITAMIN D [Concomitant]
     Indication: PROPHYLAXIS
     Route: 048
     Dates: start: 19830101
  13. NUTRIFERON [Concomitant]
     Indication: PROPHYLAXIS
     Route: 048
     Dates: start: 19830101
  14. VITAMIN B COMPLEX CAP [Concomitant]
     Indication: PROPHYLAXIS
     Route: 048
     Dates: start: 19830101

REACTIONS (1)
  - DRUG INEFFECTIVE [None]
